FAERS Safety Report 10470051 (Version 2)
Quarter: 2014Q3

REPORT INFORMATION
  Report Type: Spontaneous
  Country: US (occurrence: US)
  Receive Date: 20140923
  Receipt Date: 20140923
  Transmission Date: 20150326
  Serious: No
  Sender: FDA-Public Use
  Company Number: US-SHIONOGI, INC-2014000771

PATIENT
  Age: 68 Year
  Sex: Female
  Weight: 63.49 kg

DRUGS (3)
  1. OSPHENA [Suspect]
     Active Substance: OSPEMIFENE
     Indication: DYSPAREUNIA
     Dosage: 60 MG, QD
     Route: 048
     Dates: start: 20140617, end: 20140813
  2. OSPHENA [Suspect]
     Active Substance: OSPEMIFENE
     Dosage: 60 MG, 2X PER WEEK
     Route: 048
     Dates: start: 20140820
  3. LATANOPROST. [Concomitant]
     Active Substance: LATANOPROST
     Indication: GLAUCOMA
     Dosage: UNK
     Route: 047

REACTIONS (5)
  - Anxiety [Unknown]
  - Hot flush [Unknown]
  - Insomnia [Unknown]
  - Muscle spasms [Unknown]
  - Prescribed underdose [Unknown]

NARRATIVE: CASE EVENT DATE: 20140617
